FAERS Safety Report 6057338-4 (Version None)
Quarter: 2009Q1

REPORT INFORMATION
  Report Type: 
  Country: None (occurrence: None)
  Receive Date: 20090129
  Receipt Date: 20081105
  Transmission Date: 20090719
  Serious: No
  Sender: FDA-Public Use
  Company Number: A0755002A

PATIENT
  Age: 63 Year
  Sex: Male

DRUGS (3)
  1. BUPROPION HYDROCHLORIDE [Suspect]
     Indication: DEPRESSION
     Dosage: 100MG FOUR TIMES PER DAY
     Route: 048
     Dates: start: 19880101
  2. LISINOPRIL [Concomitant]
  3. ESTRACE [Concomitant]

REACTIONS (1)
  - DRUG INEFFECTIVE [None]
